FAERS Safety Report 7505759-2 (Version None)
Quarter: 2011Q2

REPORT INFORMATION
  Report Type: 
  Country: None (occurrence: None)
  Receive Date: 20110404
  Receipt Date: 20101214
  Transmission Date: 20111010
  Serious: Yes (Other)
  Sender: FDA-Public Use
  Company Number: 012415

PATIENT
  Age: 10 Week
  Sex: Female

DRUGS (3)
  1. BUSULFEX [Suspect]
     Indication: BONE MARROW TRANSPLANT
     Dosage: 1 MG/KG, Q6HR, INTRAVENOUS
     Route: 042
  2. ANTI-D IMMUNOGLOBULIN (ANTI-D IMMUNOGLOBULIN) [Concomitant]
  3. CYCLOPHOSPHAMIDE [Concomitant]

REACTIONS (1)
  - ACUTE GRAFT VERSUS HOST DISEASE IN SKIN [None]
